FAERS Safety Report 8306069-6 (Version None)
Quarter: 2012Q2

REPORT INFORMATION
  Report Type: 
  Country: None (occurrence: None)
  Receive Date: 20120423
  Receipt Date: 20120418
  Transmission Date: 20120825
  Serious: No
  Sender: FDA-Public Use
  Company Number: US-BAYER-2012-039105

PATIENT
  Age: 65 Year
  Sex: Female
  Weight: 36 kg

DRUGS (4)
  1. ALEVE (CAPLET) [Suspect]
     Indication: ANALGESIC THERAPY
     Route: 048
  2. PERCOCET [Concomitant]
  3. KLONOPIN [Concomitant]
  4. ZITHROMAX [Concomitant]

REACTIONS (5)
  - EYE PAIN [None]
  - HEART RATE INCREASED [None]
  - ABDOMINAL PAIN UPPER [None]
  - PAIN IN EXTREMITY [None]
  - CONTUSION [None]
